FAERS Safety Report 12216355 (Version 1)
Quarter: 2016Q1

REPORT INFORMATION
  Report Type: Spontaneous
  Country: DE (occurrence: DE)
  Receive Date: 20160329
  Receipt Date: 20160329
  Transmission Date: 20160526
  Serious: Yes (Other)
  Sender: FDA-Public Use
  Company Number: DE-ALKEM-001547

PATIENT
  Age: 1 Day
  Sex: Male
  Weight: 4.95 kg

DRUGS (3)
  1. QUETIAPINE/QUETIAPINE FUMARATE [Suspect]
     Active Substance: QUETIAPINE FUMARATE
     Indication: DEPRESSION
     Route: 064
     Dates: start: 20141228, end: 20151002
  2. VENLAFAXINE/VENLAFAXINE HYDROCHLORIDE [Concomitant]
     Active Substance: VENLAFAXINE HYDROCHLORIDE
     Indication: DEPRESSION
     Route: 064
     Dates: start: 20141228, end: 20151002
  3. FOLIO [Concomitant]
     Active Substance: FOLIC ACID
     Indication: PROPHYLAXIS OF NEURAL TUBE DEFECT
     Route: 064
     Dates: start: 20150127, end: 20151002

REACTIONS (3)
  - Foetal exposure during pregnancy [Unknown]
  - Large for dates baby [Recovering/Resolving]
  - Maternal drugs affecting foetus [None]

NARRATIVE: CASE EVENT DATE: 20151002
